FAERS Safety Report 5682418-2 (Version None)
Quarter: 2008Q1

REPORT INFORMATION
  Report Type: 
  Country: None (occurrence: None)
  Receive Date: 20080327
  Receipt Date: 20070416
  Transmission Date: 20080703
  Serious: No
  Sender: FDA-Public Use
  Company Number: US-BAUSCH-2007BL001255

PATIENT
  Age: 5 Year
  Sex: Male
  Weight: 13 kg

DRUGS (2)
  1. ALBUTEROL SULFATE [Suspect]
     Indication: ASTHMA
     Route: 049
     Dates: start: 20070403
  2. PULMICORT [Suspect]
     Indication: ASTHMA
     Route: 049
     Dates: start: 20070329

REACTIONS (1)
  - DRUG EFFECT DECREASED [None]
